FAERS Safety Report 23761575 (Version 1)
Quarter: 2024Q2

REPORT INFORMATION
  Report Type: Spontaneous
  Country: BR (occurrence: BR)
  Receive Date: 20240419
  Receipt Date: 20240419
  Transmission Date: 20240716
  Serious: Yes (Death, Life-Threatening, Hospitalization, Other)
  Sender: FDA-Public Use
  Company Number: BR-BRACCO-2024BR01903

PATIENT
  Age: 56 Year
  Sex: Female

DRUGS (6)
  1. PROHANCE [Suspect]
     Active Substance: GADOTERIDOL
     Indication: Magnetic resonance imaging pelvic
     Dosage: 10 ML, SINGLE
     Route: 042
     Dates: start: 20240405, end: 20240405
  2. GLICLAZIDE [Concomitant]
     Active Substance: GLICLAZIDE
  3. METFORMIN [Concomitant]
     Active Substance: METFORMIN HYDROCHLORIDE
  4. NORTRIPTYLINE [Concomitant]
     Active Substance: NORTRIPTYLINE
  5. SERTRALINE [Concomitant]
     Active Substance: SERTRALINE HYDROCHLORIDE
  6. VALPROIC ACID [Concomitant]
     Active Substance: VALPROIC ACID

REACTIONS (6)
  - Cardio-respiratory arrest [Fatal]
  - Pulseless electrical activity [Fatal]
  - Unresponsive to stimuli [Fatal]
  - Eye disorder [Fatal]
  - Nausea [Fatal]
  - Cough [Fatal]

NARRATIVE: CASE EVENT DATE: 20240405
